FAERS Safety Report 15052444 (Version 1)
Quarter: 2018Q2

REPORT INFORMATION
  Report Type: Spontaneous
  Country: US (occurrence: US)
  Receive Date: 20180622
  Receipt Date: 20180622
  Transmission Date: 20180711
  Serious: No
  Sender: FDA-Public Use
  Company Number: US-DENDREON PHARMACEUTICALS LLC-2017DEN000550

PATIENT
  Age: 88 Year
  Sex: Male

DRUGS (1)
  1. PROVENGE [Suspect]
     Active Substance: SIPULEUCEL-T
     Indication: PROSTATE CANCER
     Route: 042
     Dates: start: 20170829, end: 20170829

REACTIONS (2)
  - Poor venous access [Not Recovered/Not Resolved]
  - Citrate toxicity [Recovered/Resolved]

NARRATIVE: CASE EVENT DATE: 20170829
